FAERS Safety Report 20323700 (Version 3)
Quarter: 2022Q3

REPORT INFORMATION
  Report Type: Spontaneous
  Country: US (occurrence: US)
  Receive Date: 20220111
  Receipt Date: 20220923
  Transmission Date: 20221027
  Serious: No
  Sender: FDA-Public Use
  Company Number: US-LUPIN PHARMACEUTICALS INC.-2021-26571

PATIENT
  Sex: Male

DRUGS (1)
  1. ALBUTEROL SULFATE [Suspect]
     Active Substance: ALBUTEROL SULFATE
     Indication: COVID-19
     Dosage: UNK (1 PUFF Q 4 H)
     Dates: start: 20211226

REACTIONS (5)
  - Speech disorder [Unknown]
  - Off label use [Unknown]
  - Device delivery system issue [Unknown]
  - Device difficult to use [Unknown]
  - Product taste abnormal [Unknown]
